FAERS Safety Report 7685256-4 (Version None)
Quarter: 2011Q3

REPORT INFORMATION
  Report Type: 
  Country: None (occurrence: None)
  Receive Date: 20110816
  Receipt Date: 20110804
  Transmission Date: 20111222
  Serious: Yes (Hospitalization)
  Sender: FDA-Public Use
  Company Number: CA-ELI_LILLY_AND_COMPANY-CA201108001533

PATIENT
  Sex: Male

DRUGS (1)
  1. HUMALOG MIX 75/25 [Suspect]

REACTIONS (1)
  - BLOOD SODIUM DECREASED [None]
